FAERS Safety Report 13412891 (Version 3)
Quarter: 2017Q2

REPORT INFORMATION
  Report Type: Spontaneous
  Country: US (occurrence: US)
  Receive Date: 20170406
  Receipt Date: 20170630
  Transmission Date: 20170830
  Serious: Yes (Other)
  Sender: FDA-Public Use
  Company Number: US-JNJFOC-20150912464

PATIENT
  Age: 49 Year
  Sex: Male

DRUGS (11)
  1. RISPERDAL [Suspect]
     Active Substance: RISPERIDONE
     Indication: HALLUCINATION, AUDITORY
     Dosage: 2.00 MG, 3.00 MG AND 5 MG
     Route: 048
     Dates: end: 2010
  2. RISPERDAL [Suspect]
     Active Substance: RISPERIDONE
     Indication: SCHIZOAFFECTIVE DISORDER
     Dosage: 2.00 MG, 3.00 MG AND 5 MG
     Route: 048
     Dates: end: 2010
  3. RISPERDAL [Suspect]
     Active Substance: RISPERIDONE
     Indication: ANXIETY
     Dosage: 2.00 MG, 3.00 MG AND 5 MG
     Route: 048
     Dates: start: 2009, end: 200912
  4. RISPERDAL [Suspect]
     Active Substance: RISPERIDONE
     Indication: DEPRESSION
     Dosage: 2.00 MG, 3.00 MG AND 5 MG
     Route: 048
     Dates: start: 2009, end: 200912
  5. RISPERDAL [Suspect]
     Active Substance: RISPERIDONE
     Indication: SCHIZOPHRENIA
     Dosage: 2.00 MG, 3.00 MG AND 5 MG
     Route: 048
     Dates: start: 2009, end: 200912
  6. RISPERDAL [Suspect]
     Active Substance: RISPERIDONE
     Indication: SCHIZOAFFECTIVE DISORDER
     Dosage: 2.00 MG, 3.00 MG AND 5 MG
     Route: 048
     Dates: start: 2009, end: 200912
  7. RISPERDAL [Suspect]
     Active Substance: RISPERIDONE
     Indication: SCHIZOPHRENIA
     Dosage: 2.00 MG, 3.00 MG AND 5 MG
     Route: 048
     Dates: end: 2010
  8. RISPERDAL [Suspect]
     Active Substance: RISPERIDONE
     Indication: ANXIETY
     Dosage: 2.00 MG, 3.00 MG AND 5 MG
     Route: 048
     Dates: end: 2010
  9. RISPERDAL [Suspect]
     Active Substance: RISPERIDONE
     Indication: DEPRESSION
     Dosage: 2.00 MG, 3.00 MG AND 5 MG
     Route: 048
     Dates: end: 2010
  10. RISPERDAL [Suspect]
     Active Substance: RISPERIDONE
     Indication: HALLUCINATION, AUDITORY
     Dosage: 2.00 MG, 3.00 MG AND 5 MG
     Route: 048
     Dates: start: 2009, end: 200912
  11. RISPERIDONE. [Suspect]
     Active Substance: RISPERIDONE
     Indication: PRODUCT USED FOR UNKNOWN INDICATION
     Route: 048

REACTIONS (1)
  - Gynaecomastia [Unknown]

NARRATIVE: CASE EVENT DATE: 200908
